FAERS Safety Report 26063957 (Version 1)
Quarter: 2025Q4

REPORT INFORMATION
  Report Type: Spontaneous
  Country: CA (occurrence: CA)
  Receive Date: 20251119
  Receipt Date: 20251119
  Transmission Date: 20260118
  Serious: Yes (Other)
  Sender: BECTON DICKINSON
  Company Number: CA-BECTON DICKINSON-CA-BD-25-000566

PATIENT
  Age: 86 Year
  Sex: Female

DRUGS (1)
  1. CHLORHEXIDINE GLUCONATE\ISOPROPYL ALCOHOL [Suspect]
     Active Substance: CHLORHEXIDINE GLUCONATE\ISOPROPYL ALCOHOL
     Indication: Product used for unknown indication
     Dosage: 2 PERCENT
     Route: 065

REACTIONS (1)
  - Hypotension [Unknown]
